FAERS Safety Report 5132409-5 (Version None)
Quarter: 2006Q4

REPORT INFORMATION
  Report Type: 
  Country: None (occurrence: None)
  Receive Date: 20061023
  Receipt Date: 20061016
  Transmission Date: 20070319
  Serious: Yes (Other)
  Sender: FDA-Public Use
  Company Number: US-JNJFOC-20060800809

PATIENT
  Age: 17 Year
  Sex: Female
  Weight: 60 kg

DRUGS (2)
  1. ASPIRIN [Suspect]
     Indication: CEREBROVASCULAR ACCIDENT PROPHYLAXIS
     Dosage: TOTAL DAILY DOSE: 325 MG  UNIT DOSE: 325 MG
     Route: 048
     Dates: start: 20060407, end: 20060623
  2. TOPIRAMATE [Suspect]
     Indication: HEADACHE
     Dosage: TOTAL DAILY DOSE: 50 MG
     Route: 048
     Dates: start: 20060407, end: 20060623

REACTIONS (2)
  - GASTRITIS EROSIVE [None]
  - MICROCYTIC ANAEMIA [None]
